FAERS Safety Report 9501404 (Version 1)
Quarter: 2013Q1

REPORT INFORMATION
  Report Type: Spontaneous
  Country: US (occurrence: None)
  Receive Date: 20130117
  Receipt Date: 20130117
  Transmission Date: 20140127
  Serious: Yes (Other)
  Sender: FDA-Public Use
  Company Number: 1260270

PATIENT
  Age: 59 Year
  Sex: Female
  Weight: 67.95 kg

DRUGS (3)
  1. AMINOSYN [Suspect]
     Route: 041
     Dates: start: 20120222, end: 20120222
  2. DEXTROSE [Suspect]
     Route: 041
     Dates: start: 20120222, end: 20120222
  3. LIPIDS [Suspect]
     Indication: PRODUCT USED FOR UNKNOWN INDICATION
     Route: 041
     Dates: start: 20120222

REACTIONS (2)
  - Incorrect drug administration rate [None]
  - Blood glucose increased [None]
